FAERS Safety Report 14936562 (Version 1)
Quarter: 2018Q2

REPORT INFORMATION
  Report Type: Spontaneous
  Country: US (occurrence: US)
  Receive Date: 20180525
  Receipt Date: 20180525
  Transmission Date: 20180711
  Serious: No
  Sender: FDA-Public Use
  Company Number: US-TEVA-788727ACC

PATIENT

DRUGS (1)
  1. CLONIDINE. [Suspect]
     Active Substance: CLONIDINE
     Indication: POST-TRAUMATIC STRESS DISORDER

REACTIONS (4)
  - Erythema [Unknown]
  - Swelling [Unknown]
  - Pruritus [Unknown]
  - Pain [Unknown]
